FAERS Safety Report 16976239 (Version 2)
Quarter: 2019Q4

REPORT INFORMATION
  Report Type: Spontaneous
  Country: FR (occurrence: FR)
  Receive Date: 20191030
  Receipt Date: 20191209
  Transmission Date: 20200122
  Serious: Yes (Hospitalization)
  Sender: FDA-Public Use
  Company Number: FR-009507513-1910FRA015951

PATIENT
  Age: 55 Year
  Sex: Male

DRUGS (3)
  1. KEYTRUDA [Suspect]
     Active Substance: PEMBROLIZUMAB
     Indication: LUNG ADENOCARCINOMA
     Dosage: 1 DOSAGE FORM, Q3W
     Route: 042
     Dates: end: 20190909
  2. ACTISKENAN [Concomitant]
     Active Substance: MORPHINE SULFATE
     Indication: PAIN
     Dosage: 1 DOSAGE FORM
     Route: 048
     Dates: end: 201909
  3. SKENAN [Concomitant]
     Active Substance: MORPHINE SULFATE
     Indication: PAIN
     Dosage: 2 DOSAGE FORM, QD
     Route: 048

REACTIONS (1)
  - Lung disorder [Recovering/Resolving]

NARRATIVE: CASE EVENT DATE: 20190913
